FAERS Safety Report 23624264 (Version 3)
Quarter: 2024Q2

REPORT INFORMATION
  Report Type: Report from Study
  Country: AU (occurrence: AU)
  Receive Date: 20240312
  Receipt Date: 20240528
  Transmission Date: 20240716
  Serious: Yes (Other)
  Sender: FDA-Public Use
  Company Number: AU-Vifor (International) Inc.-VIT-2024-02056

PATIENT
  Age: 94 Year
  Sex: Female

DRUGS (2)
  1. AVACOPAN [Suspect]
     Active Substance: AVACOPAN
     Indication: Anti-neutrophil cytoplasmic antibody positive vasculitis
     Dosage: 10 MILLIGRAM, QD (FOR 1 WEEK)
     Route: 048
     Dates: start: 20231228
  2. AVACOPAN [Suspect]
     Active Substance: AVACOPAN
     Dosage: 30 MILLIGRAM, QD
     Route: 048
     Dates: start: 20240117

REACTIONS (7)
  - Renal impairment [Recovering/Resolving]
  - Drug intolerance [Recovering/Resolving]
  - Decreased appetite [Unknown]
  - Cognitive disorder [Unknown]
  - Peripheral swelling [Unknown]
  - Fatigue [Unknown]
  - Off label use [Unknown]

NARRATIVE: CASE EVENT DATE: 20231228
